FAERS Safety Report 19770694 (Version 2)
Quarter: 2021Q3

REPORT INFORMATION
  Report Type: Spontaneous
  Country: US (occurrence: US)
  Receive Date: 20210831
  Receipt Date: 20210831
  Transmission Date: 20211014
  Serious: Yes (Other)
  Sender: FDA-Public Use
  Company Number: US-LUPIN PHARMACEUTICALS INC.-2021-15991

PATIENT
  Age: 37 Year
  Sex: Female

DRUGS (3)
  1. HYDROCORTISONE. [Suspect]
     Active Substance: HYDROCORTISONE
     Indication: HYPOPITUITARISM
     Dosage: UNK(SELF?ADMINISTERED INTO THE THIGH UNDER THE ADVISEMENT OF AN ENDOCRINOLOGIST)
     Route: 065
  2. VANCOMYCIN [Suspect]
     Active Substance: VANCOMYCIN
     Indication: RASH
     Dosage: UNK
     Route: 042
  3. PREDNISONE. [Suspect]
     Active Substance: PREDNISONE
     Indication: RASH
     Dosage: UNK, HIGH DOSE
     Route: 065

REACTIONS (3)
  - Mycobacterium chelonae infection [Recovering/Resolving]
  - Drug ineffective [Unknown]
  - Panniculitis [Recovering/Resolving]
